FAERS Safety Report 9203551 (Version 1)
Quarter: 2013Q2

REPORT INFORMATION
  Report Type: Spontaneous
  Country: JP (occurrence: JP)
  Receive Date: 20130402
  Receipt Date: 20130402
  Transmission Date: 20140414
  Serious: Yes (Hospitalization, Other)
  Sender: FDA-Public Use
  Company Number: PHHY2013JP010635

PATIENT
  Age: 65 Year
  Sex: Female

DRUGS (4)
  1. NEORAL [Suspect]
     Indication: INTERSTITIAL LUNG DISEASE
     Dosage: 200 MG, UNK
     Route: 048
  2. NEORAL [Suspect]
     Indication: DERMATOMYOSITIS
  3. PREDNISOLONE [Suspect]
     Indication: DERMATOMYOSITIS
     Dosage: 10 MG
     Route: 048
  4. ROCALTROL [Concomitant]
     Indication: OSTEOPOROSIS
     Dosage: 1 MCG

REACTIONS (2)
  - Humerus fracture [Unknown]
  - Fall [Recovered/Resolved]
